FAERS Safety Report 6180562-7 (Version None)
Quarter: 2009Q2

REPORT INFORMATION
  Report Type: 
  Country: None (occurrence: None)
  Receive Date: 20090504
  Receipt Date: 20090421
  Transmission Date: 20091009
  Serious: No
  Sender: FDA-Public Use
  Company Number: B0572333A

PATIENT
  Age: 11 Year
  Sex: Male

DRUGS (2)
  1. COMBIVIR [Suspect]
     Indication: HIV INFECTION
  2. EFAVIRENZ [Suspect]
     Indication: HIV INFECTION

REACTIONS (4)
  - BASEDOW'S DISEASE [None]
  - GOITRE [None]
  - LOBAR PNEUMONIA [None]
  - PALPITATIONS [None]
